FAERS Safety Report 8458258-8 (Version None)
Quarter: 2012Q2

REPORT INFORMATION
  Report Type: 
  Country: None (occurrence: None)
  Receive Date: 20120323
  Receipt Date: 20111024
  Transmission Date: 20120825
  Serious: Yes (Hospitalization)
  Sender: FDA-Public Use
  Company Number: 163-21880-11102719

PATIENT
  Age: 85 Year
  Sex: Male
  Weight: 110.6777 kg

DRUGS (6)
  1. SYNTHROID [Concomitant]
  2. PREVACID [Concomitant]
  3. VICODIN [Concomitant]
  4. REVLIMID [Suspect]
     Indication: MYELODYSPLASTIC SYNDROME
     Dosage: 10 MG, DAILY FOR 21 DAYS ON 7 DAYS OFF, PO
     Route: 048
     Dates: start: 20111014
  5. SERTRALINE HYDROCHLORIDE [Concomitant]
  6. CENTRUM (CENTRUM) [Concomitant]

REACTIONS (2)
  - PYREXIA [None]
  - CHILLS [None]
